FAERS Safety Report 12141995 (Version 1)
Quarter: 2016Q1

REPORT INFORMATION
  Report Type: Spontaneous
  Country: US (occurrence: US)
  Receive Date: 20160303
  Receipt Date: 20160303
  Transmission Date: 20160526
  Serious: Yes (Hospitalization, Other)
  Sender: FDA-Public Use
  Company Number: US-MEDTRONIC-1048640

PATIENT
  Age: 45 Year
  Sex: Male

DRUGS (2)
  1. LIORESAL [Suspect]
     Active Substance: BACLOFEN
     Indication: MUSCLE SPASTICITY
     Route: 037
  2. BACLOFEN. [Suspect]
     Active Substance: BACLOFEN
     Route: 048

REACTIONS (11)
  - Incorrect drug administration rate [None]
  - Blood pressure decreased [None]
  - Sepsis [None]
  - Urinary tract infection [None]
  - Ear infection [None]
  - Body temperature decreased [None]
  - Muscle spasms [None]
  - Device computer issue [None]
  - Influenza like illness [None]
  - Abdominal discomfort [None]
  - Overdose [None]

NARRATIVE: CASE EVENT DATE: 20160228
